FAERS Safety Report 9121889 (Version 1)
Quarter: 2013Q1

REPORT INFORMATION
  Report Type: Spontaneous
  Country: US (occurrence: None)
  Receive Date: 20130125
  Receipt Date: 20130125
  Transmission Date: 20140127
  Serious: Yes (Hospitalization)
  Sender: FDA-Public Use
  Company Number: 2012US-004400

PATIENT
  Age: 44 Year
  Sex: Female
  Weight: 87.2 kg

DRUGS (22)
  1. OMONTYS (PEGINESATIDE) SOLUTION FOR INJECTION [Suspect]
     Indication: NEPHROGENIC ANAEMIA
     Dosage: 4.0 MG, Q 4 WEEKS, INTRAVENOUS
     Route: 042
     Dates: start: 20120921, end: 20120921
  2. AFEDITAB CR (NIFEDIPINE) [Concomitant]
  3. AMLODIPINE BESYLATE (AMLODIPINE BESILATE) [Concomitant]
  4. ASPIRIN (E.C.) ACETYLSALICYLIC ACID) [Concomitant]
  5. CRANBERRY EXTRACT [Concomitant]
  6. EFFEXOR (VENLAFAXINE HYDROCHLORIDE) [Concomitant]
  7. FUROSEMID (FUROSEMIDE) [Concomitant]
  8. PHOSLO (CALCIUM ACETATE) [Concomitant]
  9. PLAVIX (CLOPIDOGREL BISULFATE) [Concomitant]
  10. RENAL MULTIVITAMIN [Concomitant]
  11. SIMVASTATIN (SIMVASTATIN) [Concomitant]
  12. DOCUSATE SODIUM (DOCUSATE SODIUM) [Concomitant]
  13. TRAZODONE (TRAZODONE) [Concomitant]
  14. ZEMPLAR (PARICALCITOL) [Concomitant]
  15. VENOFER [Concomitant]
  16. LANTUS (INSULIN GLARGINE) [Concomitant]
  17. PROVENTIL (SALBUTAMOL) [Concomitant]
  18. HUMULIN BASAL NPH (INSULIN HUMAN INJECTION, ISOPHANE) [Concomitant]
  19. RENVELA (SEVELAMER CARBONATE) [Concomitant]
  20. METOPROLOL (METOPROLOL) [Concomitant]
  21. EPOGEN (EPOETIN ALFA) [Concomitant]
  22. COZAAR (LOSARTAN POTASSIUM) [Concomitant]

REACTIONS (12)
  - Hypersensitivity [None]
  - Dyspnoea [None]
  - Nausea [None]
  - Chest pain [None]
  - Pain [None]
  - Arthralgia [None]
  - Vomiting [None]
  - Loss of consciousness [None]
  - Anxiety [None]
  - Pruritus [None]
  - Tachycardia [None]
  - Respiratory alkalosis [None]
